FAERS Safety Report 6453996-0 (Version None)
Quarter: 2009Q4

REPORT INFORMATION
  Report Type: 
  Country: None (occurrence: None)
  Receive Date: 20091124
  Receipt Date: 20091118
  Transmission Date: 20100525
  Serious: Yes (Hospitalization, Congenital Anomaly)
  Sender: FDA-Public Use
  Company Number: A0681265A

PATIENT
  Sex: Male

DRUGS (6)
  1. PAXIL [Suspect]
     Indication: DEPRESSION
     Dosage: 10MG PER DAY
     Dates: start: 20000101
  2. PAXIL CR [Suspect]
     Indication: DEPRESSION
  3. PAROXETINE HCL [Suspect]
     Indication: DEPRESSION
  4. VITAMIN TAB [Concomitant]
  5. ALLEGRA [Concomitant]
  6. TYLENOL W/ CODEINE [Concomitant]

REACTIONS (6)
  - ATRIAL SEPTAL DEFECT [None]
  - CLEFT LIP AND PALATE [None]
  - CONGENITAL SCOLIOSIS [None]
  - CONGENITAL TORTICOLLIS [None]
  - DRUG EXPOSURE DURING PREGNANCY [None]
  - PATENT DUCTUS ARTERIOSUS [None]
